FAERS Safety Report 24995013 (Version 1)
Quarter: 2025Q1

REPORT INFORMATION
  Report Type: Spontaneous
  Country: JP (occurrence: JP)
  Receive Date: 20250221
  Receipt Date: 20250221
  Transmission Date: 20250409
  Serious: Yes (Hospitalization)
  Sender: EISAI
  Company Number: JP-Eisai-202415089_LEN-RCC_P_1

PATIENT
  Age: 78 Year
  Sex: Male

DRUGS (3)
  1. LENVIMA [Suspect]
     Active Substance: LENVATINIB
     Indication: Renal cell carcinoma
     Dates: start: 20250115
  2. LENVIMA [Suspect]
     Active Substance: LENVATINIB
     Dates: start: 202501, end: 202502
  3. KEYTRUDA [Suspect]
     Active Substance: PEMBROLIZUMAB
     Indication: Renal cell carcinoma
     Dates: start: 20250115, end: 202502

REACTIONS (3)
  - Asthenia [Recovering/Resolving]
  - Tremor [Recovering/Resolving]
  - Hypertension [Recovering/Resolving]

NARRATIVE: CASE EVENT DATE: 20250101
